FAERS Safety Report 6398635-2 (Version None)
Quarter: 2009Q4

REPORT INFORMATION
  Report Type: 
  Country: None (occurrence: None)
  Receive Date: 20091013
  Receipt Date: 20091005
  Transmission Date: 20100525
  Serious: No
  Sender: FDA-Public Use
  Company Number: US-JNJFOC-20091002075

PATIENT
  Sex: Female
  Weight: 53.98 kg

DRUGS (12)
  1. DURAGESIC-100 [Suspect]
     Dosage: 100UG/HR OF MATRIX PATCH PLUS 25UG/HR RESERVOIR PATCH
     Route: 062
  2. DURAGESIC-100 [Suspect]
     Indication: PROCTALGIA
     Route: 062
  3. DURAGESIC-100 [Suspect]
     Route: 062
  4. AMIODARONE [Concomitant]
  5. COUMADIN [Concomitant]
  6. CARVEDILOL [Concomitant]
     Indication: HYPERTENSION
  7. NORTRIPTYLINE [Concomitant]
     Indication: PAIN
  8. AMLODIPINE [Concomitant]
     Indication: HYPERTENSION
  9. LEVOXYL [Concomitant]
     Indication: THYROID DISORDER
  10. FUROSET [Concomitant]
     Indication: HEADACHE
  11. OXYCODONE HCL AND ACETAMINOPHEN [Concomitant]
     Indication: PAIN
     Dosage: 10MG TO 325MG
  12. OXYCODONE [Concomitant]
     Indication: PAIN

REACTIONS (3)
  - DRUG INEFFECTIVE [None]
  - HEADACHE [None]
  - INAPPROPRIATE SCHEDULE OF DRUG ADMINISTRATION [None]
